FAERS Safety Report 11163339 (Version 1)
Quarter: 2015Q2

REPORT INFORMATION
  Report Type: Report from Study
  Country: FR (occurrence: FR)
  Receive Date: 20150604
  Receipt Date: 20150604
  Transmission Date: 20150821
  Serious: Yes (Hospitalization)
  Sender: FDA-Public Use
  Company Number: FR-ROCHE-1162528

PATIENT
  Age: 65 Year
  Sex: Male

DRUGS (3)
  1. RITUXIMAB [Suspect]
     Active Substance: RITUXIMAB
     Indication: RHEUMATOID ARTHRITIS
     Dosage: DAY 1
     Route: 042
     Dates: start: 20071015
  2. RITUXIMAB [Suspect]
     Active Substance: RITUXIMAB
     Dosage: DAY 15
     Route: 065
     Dates: start: 20071029, end: 20090608
  3. CORTANCYL [Concomitant]
     Active Substance: PREDNISONE

REACTIONS (7)
  - Dyspnoea [Recovered/Resolved]
  - Lung infection [Recovered/Resolved]
  - Pleural infection [Recovered/Resolved]
  - Skin lesion [Not Recovered/Not Resolved]
  - Bronchopneumonia [Recovered/Resolved]
  - Anal fistula [Recovered/Resolved]
  - Pleural effusion [Recovered/Resolved]

NARRATIVE: CASE EVENT DATE: 2008
